FAERS Safety Report 11168592 (Version 2)
Quarter: 2015Q2

REPORT INFORMATION
  Report Type: Report from Study
  Country: JP (occurrence: JP)
  Receive Date: 20150605
  Receipt Date: 20150630
  Transmission Date: 20150821
  Serious: Yes (Other)
  Sender: FDA-Public Use
  Company Number: JP-AMGEN-JPNCT2015055084

PATIENT
  Age: 81 Year
  Sex: Male
  Weight: 61 kg

DRUGS (14)
  1. HIRUDOID                           /00723701/ [Concomitant]
     Indication: PRURITUS
     Dosage: UNK
     Route: 061
  2. CEFMETAZOLE SODIUM [Concomitant]
     Active Substance: CEFMETAZOLE SODIUM
     Indication: PROPHYLAXIS
     Dosage: UNK
     Route: 065
  3. ROMIPLOSTIM - KHK [Suspect]
     Active Substance: ROMIPLOSTIM
     Indication: IMMUNE THROMBOCYTOPENIC PURPURA
     Dosage: 6 MUG/KG, QWK
     Route: 058
     Dates: start: 20141028
  4. HYDROCORTONE                       /00028601/ [Concomitant]
     Active Substance: HYDROCORTISONE
     Indication: IMMUNE THROMBOCYTOPENIC PURPURA
     Dosage: 200 MG, UNK
     Route: 042
     Dates: start: 20150224, end: 20150225
  5. MAGLAX [Concomitant]
     Active Substance: MAGNESIUM OXIDE
     Indication: CONSTIPATION
     Dosage: UNK
     Route: 048
  6. XYZAL [Concomitant]
     Active Substance: LEVOCETIRIZINE DIHYDROCHLORIDE
     Indication: PRURITUS
     Dosage: UNK
     Route: 048
  7. GASTER [Concomitant]
     Active Substance: FAMOTIDINE
     Indication: GASTROOESOPHAGEAL REFLUX DISEASE
     Dosage: UNK
     Route: 048
  8. VENILON [Concomitant]
     Active Substance: HUMAN IMMUNOGLOBULIN G
     Indication: IMMUNE THROMBOCYTOPENIC PURPURA
     Dosage: 20000 MG, UNK
     Route: 042
     Dates: start: 20150209, end: 20150223
  9. TAKEPRON [Concomitant]
     Active Substance: LANSOPRAZOLE
     Indication: GASTROOESOPHAGEAL REFLUX DISEASE
     Dosage: UNK
     Route: 048
  10. LOCHOL                             /01224502/ [Concomitant]
     Active Substance: FLUVASTATIN SODIUM
     Indication: DYSLIPIDAEMIA
     Dosage: UNK
     Route: 048
  11. REVOLADE [Concomitant]
     Active Substance: ELTROMBOPAG
     Indication: IMMUNE THROMBOCYTOPENIC PURPURA
     Dosage: 50 MG, UNK
     Route: 048
     Dates: start: 20140410, end: 20141027
  12. PREDONINE [Concomitant]
     Active Substance: PREDNISOLONE\PREDNISOLONE ACETATE\PREDNISOLONE SODIUM SUCCINATE
     Indication: IMMUNE THROMBOCYTOPENIC PURPURA
     Dosage: 7.5 MG, UNK
     Route: 048
     Dates: start: 20141011
  13. BERIZYM                            /01945301/ [Concomitant]
     Indication: PANCREATITIS CHRONIC
     Dosage: UNK
     Route: 048
  14. TRANSAMIN [Concomitant]
     Active Substance: TRANEXAMIC ACID
     Indication: IMMUNE THROMBOCYTOPENIC PURPURA
     Dosage: 750 MG, UNK
     Route: 048
     Dates: start: 20141003, end: 20150217

REACTIONS (2)
  - Vertebral artery occlusion [Unknown]
  - Nausea [Recovered/Resolved]

NARRATIVE: CASE EVENT DATE: 20141222
